FAERS Safety Report 4565375-1 (Version None)
Quarter: 2005Q1

REPORT INFORMATION
  Report Type: 
  Country: None (occurrence: None)
  Receive Date: 20050125
  Receipt Date: 20050125
  Transmission Date: 20050727
  Serious: No
  Sender: FDA-Public Use
  Company Number: None

PATIENT
  Age: 39 Year
  Sex: Male
  Weight: 124.7392 kg

DRUGS (2)
  1. LEVAQUIN [Suspect]
     Indication: EAR INFECTION
     Dosage: 250 MG 1X DAILY ORAL
     Route: 048
     Dates: start: 20040201, end: 20040401
  2. CIPRO [Suspect]
     Indication: PROSTATE INFECTION
     Dosage: 500 MG 2X DAILY ORAL
     Route: 048
     Dates: start: 20050117, end: 20050122

REACTIONS (11)
  - ANXIETY [None]
  - DEPRESSION [None]
  - DIZZINESS [None]
  - HEADACHE [None]
  - MALAISE [None]
  - MUSCLE TWITCHING [None]
  - PROSTATE INFECTION [None]
  - RASH [None]
  - TIC [None]
  - TREMOR [None]
  - VISUAL DISTURBANCE [None]
